FAERS Safety Report 14607667 (Version 2)
Quarter: 2018Q1

REPORT INFORMATION
  Report Type: Spontaneous
  Country: CH (occurrence: CH)
  Receive Date: 20180307
  Receipt Date: 20180312
  Transmission Date: 20180509
  Serious: Yes (Other)
  Sender: FDA-Public Use
  Company Number: CH-GLAXOSMITHKLINE-CH2018GSK035871

PATIENT
  Age: 70 Year
  Sex: Female

DRUGS (1)
  1. REQUIP [Suspect]
     Active Substance: ROPINIROLE HYDROCHLORIDE
     Indication: PARKINSON^S DISEASE
     Dosage: UNK
     Route: 048
     Dates: start: 2016, end: 20170917

REACTIONS (6)
  - Road traffic accident [Unknown]
  - Mental impairment [Recovering/Resolving]
  - Amnesia [Recovering/Resolving]
  - Dementia [Recovering/Resolving]
  - Sudden onset of sleep [Recovering/Resolving]
  - Abnormal behaviour [Recovering/Resolving]

NARRATIVE: CASE EVENT DATE: 2016
